FAERS Safety Report 12188786 (Version 1)
Quarter: 2016Q1

REPORT INFORMATION
  Report Type: Other
  Country: US (occurrence: US)
  Receive Date: 20160317
  Receipt Date: 20160317
  Transmission Date: 20160526
  Serious: Yes (Hospitalization)
  Sender: FDA-Public Use
  Company Number: US-DEP_13809_2016

PATIENT
  Sex: Female
  Weight: 42 kg

DRUGS (13)
  1. BONIVA [Concomitant]
     Active Substance: IBANDRONATE SODIUM
     Indication: OSTEOGENESIS IMPERFECTA
     Dosage: ONCE A MONTH
     Route: 048
  2. METHIMAZOLE. [Concomitant]
     Active Substance: METHIMAZOLE
     Indication: HYPERTHYROIDISM
     Route: 048
     Dates: start: 2014
  3. ALPRAZOLAM. [Concomitant]
     Active Substance: ALPRAZOLAM
     Indication: SLEEP DISORDER
     Dosage: HALF OF A 0.5 MG TABLET
     Route: 048
     Dates: start: 2016
  4. TRAMADOL. [Suspect]
     Active Substance: TRAMADOL
     Indication: ORAL PAIN
     Dosage: DF
     Dates: start: 2016
  5. NUCYNTA ER [Suspect]
     Active Substance: TAPENTADOL HYDROCHLORIDE
     Indication: PAIN IN JAW
     Route: 048
     Dates: start: 2014, end: 2014
  6. OXYCODONE [Suspect]
     Active Substance: OXYCODONE
     Indication: PAIN IN JAW
     Dosage: DF
     Dates: start: 201601, end: 2016
  7. NUCYNTA [Suspect]
     Active Substance: TAPENTADOL HYDROCHLORIDE
     Indication: PAIN IN JAW
     Route: 048
     Dates: start: 2014, end: 201601
  8. TRAMADOL. [Suspect]
     Active Substance: TRAMADOL
     Indication: PAIN IN JAW
     Dosage: DF
     Dates: start: 2016
  9. NUCYNTA [Suspect]
     Active Substance: TAPENTADOL HYDROCHLORIDE
     Indication: ORAL PAIN
     Route: 048
     Dates: start: 2014, end: 2014
  10. OXYCODONE [Suspect]
     Active Substance: OXYCODONE
     Indication: ORAL PAIN
     Dosage: DF
     Dates: start: 201601, end: 2016
  11. NUCYNTA ER [Suspect]
     Active Substance: TAPENTADOL HYDROCHLORIDE
     Indication: ORAL PAIN
     Route: 048
     Dates: start: 2014, end: 2014
  12. METHADONE [Suspect]
     Active Substance: METHADONE HYDROCHLORIDE
     Indication: ORAL PAIN
     Dosage: DF
     Dates: start: 2016, end: 2016
  13. METHADONE [Suspect]
     Active Substance: METHADONE HYDROCHLORIDE
     Indication: PAIN IN JAW
     Dosage: DF
     Dates: start: 2016, end: 2016

REACTIONS (12)
  - Vomiting [Not Recovered/Not Resolved]
  - Drug ineffective [Recovered/Resolved]
  - Unresponsive to stimuli [Recovered/Resolved]
  - Product quality issue [Recovered/Resolved]
  - Lung neoplasm malignant [Recovered/Resolved]
  - Feeling abnormal [Unknown]
  - Mental status changes [Recovered/Resolved]
  - Hip fracture [Recovered/Resolved]
  - Overdose [Recovered/Resolved]
  - Urinary tract infection [Recovered/Resolved]
  - Fall [Recovered/Resolved]
  - Somnolence [Unknown]

NARRATIVE: CASE EVENT DATE: 2014
